FAERS Safety Report 23192147 (Version 1)
Quarter: 2023Q4

REPORT INFORMATION
  Report Type: Spontaneous
  Country: US (occurrence: None)
  Receive Date: 20231115
  Receipt Date: 20231115
  Transmission Date: 20240109
  Serious: Yes (Life-Threatening, Hospitalization)
  Sender: FDA-Public Use
  Company Number: None

PATIENT
  Age: 60 Year
  Sex: Female
  Weight: 109 kg

DRUGS (19)
  1. TENECTEPLASE [Suspect]
     Active Substance: TENECTEPLASE
     Indication: Cerebrovascular accident
     Dosage: OTHER FREQUENCY : ONCE;?
     Route: 040
     Dates: start: 20231112, end: 20231112
  2. LISINOPRIL [Concomitant]
     Active Substance: LISINOPRIL
  3. AMLODIPINE [Concomitant]
     Active Substance: AMLODIPINE BESYLATE
  4. ATORVASTATIN [Concomitant]
     Active Substance: ATORVASTATIN
  5. BUSPIRONE HYDROCHLORIDE [Concomitant]
     Active Substance: BUSPIRONE HYDROCHLORIDE
  6. ESCITALOPRAM [Concomitant]
     Active Substance: ESCITALOPRAM OXALATE
  7. GABAPENTIN [Concomitant]
     Active Substance: GABAPENTIN
  8. METFORMIN HYDROCHLORIDE [Concomitant]
     Active Substance: METFORMIN HYDROCHLORIDE
  9. OMEPRAZOLE [Concomitant]
     Active Substance: OMEPRAZOLE
  10. nitroglycerin 0.4mg [Concomitant]
  11. INSULIN GLARGINE [Concomitant]
     Active Substance: INSULIN GLARGINE
  12. INSULIN ASPART [Concomitant]
     Active Substance: INSULIN ASPART
  13. ACETAMINOPHEN [Concomitant]
     Active Substance: ACETAMINOPHEN
  14. ASPIRIN [Concomitant]
     Active Substance: ASPIRIN
  15. BUDESONIDE\FORMOTEROL FUMARATE [Concomitant]
     Active Substance: BUDESONIDE\FORMOTEROL FUMARATE
  16. ipratropium/albuterol nebulizer [Concomitant]
  17. FUROSEMIDE [Concomitant]
     Active Substance: FUROSEMIDE
  18. FLUTICASONE [Concomitant]
     Active Substance: FLUTICASONE
  19. DIPHENHYDRAMINE [Concomitant]
     Active Substance: DIPHENHYDRAMINE

REACTIONS (2)
  - Drug hypersensitivity [None]
  - Angioedema [None]

NARRATIVE: CASE EVENT DATE: 20231112
